FAERS Safety Report 18360476 (Version 1)
Quarter: 2020Q4

REPORT INFORMATION
  Report Type: Spontaneous
  Country: CA (occurrence: CA)
  Receive Date: 20201007
  Receipt Date: 20201007
  Transmission Date: 20210114
  Serious: Yes (Disabling)
  Sender: FDA-Public Use
  Company Number: None

PATIENT
  Sex: Female

DRUGS (1)
  1. SORIATANE [Suspect]
     Active Substance: ACITRETIN
     Indication: PSORIASIS
     Route: 048
     Dates: start: 2008

REACTIONS (7)
  - Pain [None]
  - Alopecia [None]
  - Autoimmune disorder [None]
  - Emotional disorder [None]
  - Therapy change [None]
  - Anaemia [None]
  - Psoriasis [None]

NARRATIVE: CASE EVENT DATE: 2008
